FAERS Safety Report 12491912 (Version 1)
Quarter: 2016Q2

REPORT INFORMATION
  Report Type: Spontaneous
  Country: US (occurrence: None)
  Receive Date: 20160622
  Receipt Date: 20160622
  Transmission Date: 20160815
  Serious: Yes (Life-Threatening, Hospitalization, Disabling)
  Sender: FDA-Public Use
  Company Number: None

PATIENT
  Age: 8 Month
  Sex: Male
  Weight: 61.69 kg

DRUGS (1)
  1. MINOCYCLINE, 50 MG [Suspect]
     Active Substance: MINOCYCLINE\MINOCYCLINE HYDROCHLORIDE
     Indication: ACNE
     Route: 048
     Dates: start: 20151005, end: 20151017

REACTIONS (7)
  - Anxiety [None]
  - Educational problem [None]
  - Agitation [None]
  - Panic attack [None]
  - Suicidal ideation [None]
  - Nausea [None]
  - Crying [None]

NARRATIVE: CASE EVENT DATE: 20151005
